FAERS Safety Report 11781121 (Version 7)
Quarter: 2021Q2

REPORT INFORMATION
  Report Type: Spontaneous
  Country: US (occurrence: US)
  Receive Date: 20151126
  Receipt Date: 20210614
  Transmission Date: 20210716
  Serious: No
  Sender: FDA-Public Use
  Company Number: US-PFIZER INC-2015390993

PATIENT
  Age: 66 Year
  Sex: Female
  Weight: 86 kg

DRUGS (36)
  1. LYRICA [Suspect]
     Active Substance: PREGABALIN
     Indication: ARTHRITIS
     Dosage: 200 MG, DAILY, 50MG IN THE MORNING AND 150MG AT NIGHT
     Route: 048
     Dates: start: 2015
  2. ALOE VERA [Concomitant]
     Active Substance: ALOE VERA LEAF
     Dosage: UNK
  3. TRAZODONE [Concomitant]
     Active Substance: TRAZODONE HYDROCHLORIDE
     Indication: NEURALGIA
     Dosage: 30 MG, 2X/DAY
     Route: 048
  4. BUSPIRONE [Concomitant]
     Active Substance: BUSPIRONE HYDROCHLORIDE
     Indication: DEPRESSION
     Dosage: 200 MG, 2X/DAY (IN THE MORNING AND IN THE NIGHT)
     Route: 048
  5. MIRALAX [Concomitant]
     Active Substance: POLYETHYLENE GLYCOL 3350
     Dosage: UNK, DAILY (1 CP)
  6. HYDROCODONE? ACETAMINOPHEN [Concomitant]
     Indication: PAIN
     Dosage: UNK (HYDROCODONE BITARTRATE: 5; ACETAMINOPHEN: 325 1 OR 2)
  7. LYRICA [Suspect]
     Active Substance: PREGABALIN
     Dosage: 100 MG, 2X/DAY
     Route: 048
  8. BABY ASPIRIN [Concomitant]
     Active Substance: ASPIRIN
     Dosage: UNK, 1X/DAY (AT NIGHT)
  9. ARMOUR THYROID [Concomitant]
     Active Substance: THYROID, PORCINE
     Indication: THYROID DISORDER
     Dosage: 60 MG, 1X/DAY, IN THE MORNING (1 TAB AM WHEN I WAKE UP)
     Route: 048
  10. MONTELUK [Concomitant]
     Indication: HYPERSENSITIVITY
     Dosage: 10 MG, 1X/DAY (AT NIGHT)
     Route: 048
     Dates: start: 20160615
  11. CALCIUM MAGNESIUM + VITAMIN D3 [Concomitant]
     Dosage: UNK (CALCIUM 1000 MG, COLECALCIFEROL 400 IU, MAGNESIUM 500 MG)
  12. PB8 ACIDOPHILUS [Concomitant]
     Dosage: UNK
  13. LYRICA [Suspect]
     Active Substance: PREGABALIN
     Indication: PAIN
     Dosage: 200 MG, DAILY, 50MG IN THE MORNING AND 150MG AT NIGHT
     Route: 048
  14. PRISTIQ EXTENDED?RELEASE [Concomitant]
     Active Substance: DESVENLAFAXINE SUCCINATE
     Indication: CEREBROVASCULAR ACCIDENT
     Dosage: 50 MG, 1X/DAY
     Route: 048
     Dates: start: 2005
  15. PRISTIQ EXTENDED?RELEASE [Concomitant]
     Active Substance: DESVENLAFAXINE SUCCINATE
     Indication: ASTHENIA
     Dosage: 100 MG, DAILY
     Route: 048
  16. PRISTIQ EXTENDED?RELEASE [Concomitant]
     Active Substance: DESVENLAFAXINE SUCCINATE
     Dosage: 100 MG, 1X/DAY(IN THE AM)
     Route: 048
  17. FLUTICASONE. [Concomitant]
     Active Substance: FLUTICASONE
     Indication: NASAL CONGESTION
     Dosage: 50 UG, AS NEEDED
     Route: 045
  18. PROGESTERONE. [Concomitant]
     Active Substance: PROGESTERONE
     Indication: HOT FLUSH
     Dosage: 100 MG, 1X/DAY
     Route: 048
  19. RITALIN [Concomitant]
     Active Substance: METHYLPHENIDATE HYDROCHLORIDE
     Indication: CEREBROVASCULAR ACCIDENT
     Dosage: 20 MG, DAILY, 10 MG TABLET BY MOUTH IN THE MORNING AND ONE 10MG TABLET AFTER LUNCH
     Route: 048
  20. RITALIN [Concomitant]
     Active Substance: METHYLPHENIDATE HYDROCHLORIDE
     Indication: ATTENTION DEFICIT HYPERACTIVITY DISORDER
     Dosage: 10 MG PILL BY MOUTH ONE IN AM AND 1/2 IN AFTERNOON)
     Route: 048
  21. SINGULAIR [Concomitant]
     Active Substance: MONTELUKAST SODIUM
     Indication: HYPERSENSITIVITY
     Dosage: 10 MG, 1X/DAY (AT NIGHT)
  22. MUPIROCIN. [Concomitant]
     Active Substance: MUPIROCIN
     Indication: EPISTAXIS
     Dosage: 2% OINTMENT PUT FIFTH OF TUBE IN SALINE SOLUTION
  23. NP THYROID [Concomitant]
     Active Substance: LEVOTHYROXINE\LIOTHYRONINE
     Indication: HYPOTHYROIDISM
     Dosage: 60 MG, 1X/DAY (MORNING)
     Route: 048
  24. VITAMIN B12 [Concomitant]
     Active Substance: CYANOCOBALAMIN
     Dosage: UNK
  25. LYRICA [Suspect]
     Active Substance: PREGABALIN
     Indication: NECK PAIN
     Dosage: 100 MG, 1X/DAY
     Route: 048
     Dates: start: 2010
  26. WELLBUTRIN [Concomitant]
     Active Substance: BUPROPION HYDROCHLORIDE
     Indication: CEREBROVASCULAR ACCIDENT
     Dosage: 200 MG, 2X/DAY, IN THE MORNING AND AT NIGHT
     Route: 048
  27. OXYCODONE ACETAMINOPHEN [Concomitant]
     Active Substance: ACETAMINOPHEN\OXYCODONE HYDROCHLORIDE
     Indication: RAPID EYE MOVEMENTS SLEEP ABNORMAL
     Dosage: 2 DF, 1X/DAY AT NIGHT
     Route: 048
  28. OMEGA 3 FISH OILS [Concomitant]
     Active Substance: OMEGA-3 FATTY ACIDS
     Dosage: 120 MG, 4X/DAY
  29. VITEYES [Concomitant]
     Dosage: UNK
  30. COLLAGEN HYDROLYSATE [Concomitant]
     Dosage: UNK
  31. ONDANSETRON HCL [Concomitant]
     Active Substance: ONDANSETRON HYDROCHLORIDE
     Indication: VOMITING
     Dosage: 4 MG
  32. LYRICA [Suspect]
     Active Substance: PREGABALIN
     Indication: OSTEOARTHRITIS
     Dosage: 150 MG, 2X/DAY(AT AM DAY AND NIGHT)
     Route: 048
  33. MUPIROCIN. [Concomitant]
     Active Substance: MUPIROCIN
     Indication: NASAL CONGESTION
  34. TRAZODONE [Concomitant]
     Active Substance: TRAZODONE HYDROCHLORIDE
     Indication: DEPRESSION
     Dosage: 50 MG, 2 TABLETS AT NIGHT (BEDTIME)
  35. TRAZODONE [Concomitant]
     Active Substance: TRAZODONE HYDROCHLORIDE
     Indication: INSOMNIA
  36. BUSPIRONE [Concomitant]
     Active Substance: BUSPIRONE HYDROCHLORIDE
     Indication: CEREBROVASCULAR ACCIDENT

REACTIONS (8)
  - Nerve compression [Unknown]
  - Pain [Unknown]
  - Condition aggravated [Unknown]
  - Fall [Unknown]
  - Drug ineffective [Recovering/Resolving]
  - Feeling abnormal [Recovering/Resolving]
  - Memory impairment [Recovering/Resolving]
  - Feeling abnormal [Unknown]
